FAERS Safety Report 8602539-1 (Version None)
Quarter: 2012Q3

REPORT INFORMATION
  Report Type: 
  Country: None (occurrence: None)
  Receive Date: 20120817
  Receipt Date: 20120810
  Transmission Date: 20120928
  Serious: Yes (Other)
  Sender: FDA-Public Use
  Company Number: PHEH2012US016005

PATIENT
  Sex: Female

DRUGS (10)
  1. CYMBALTA [Concomitant]
  2. OXYCODONE HCL [Concomitant]
     Dosage: 10MG Q4
  3. ZOMETA [Suspect]
     Indication: BREAST CANCER METASTATIC
     Dosage: 4MG Q21
  4. FASLODEX [Concomitant]
  5. AVALIDE [Concomitant]
  6. PROZAC [Concomitant]
  7. RITALIN [Concomitant]
  8. TAMOXIFEN CITRATE [Concomitant]
  9. XANAX [Concomitant]
     Dosage: 0.5MG Q4 P.R.N
  10. PHENERGAN HCL [Concomitant]

REACTIONS (33)
  - ANXIETY [None]
  - DEPRESSION [None]
  - OSTEONECROSIS OF JAW [None]
  - EXPOSED BONE IN JAW [None]
  - TOOTH LOSS [None]
  - URINARY RETENTION [None]
  - BONE LESION [None]
  - INFECTION [None]
  - NEOPLASM PROGRESSION [None]
  - NEOPLASM MALIGNANT [None]
  - METASTASES TO BONE [None]
  - LUNG NEOPLASM [None]
  - EAR INFECTION [None]
  - HEPATIC STEATOSIS [None]
  - BACK PAIN [None]
  - TOOTHACHE [None]
  - MUSCULOSKELETAL CHEST PAIN [None]
  - SEROMA [None]
  - GRANULOMA [None]
  - HEADACHE [None]
  - SCOLIOSIS [None]
  - OSTEOMYELITIS [None]
  - FALL [None]
  - ARTHRALGIA [None]
  - LYMPHADENOPATHY [None]
  - GINGIVAL DISORDER [None]
  - ABDOMINAL HERNIA [None]
  - FATIGUE [None]
  - OEDEMA [None]
  - DENTAL NECROSIS [None]
  - PAIN IN JAW [None]
  - BONE DECALCIFICATION [None]
  - SPLENIC GRANULOMA [None]
